FAERS Safety Report 7299307-2 (Version None)
Quarter: 2011Q1

REPORT INFORMATION
  Report Type: 
  Country: None (occurrence: None)
  Receive Date: 20110217
  Receipt Date: 20110210
  Transmission Date: 20110831
  Serious: Yes (Other)
  Sender: FDA-Public Use
  Company Number: BR-SANOFI-AVENTIS-2011SA008962

PATIENT
  Sex: Male
  Weight: 90 kg

DRUGS (11)
  1. OMEPRAZOLE [Concomitant]
     Indication: GASTRIC DISORDER
     Route: 048
  2. BENERVA [Concomitant]
     Indication: RENAL DISORDER
     Route: 048
     Dates: start: 20100501
  3. CILOSTAZOL [Concomitant]
     Route: 048
     Dates: start: 20100501
  4. LASIX [Concomitant]
     Route: 048
     Dates: start: 20100501
  5. SIMVASTATIN [Concomitant]
     Route: 048
     Dates: start: 20100501
  6. EUTHYROX [Concomitant]
     Indication: HYPOTHYROIDISM
     Route: 048
     Dates: start: 20100501
  7. LOSARTAN [Concomitant]
     Indication: HYPERTENSION
     Route: 048
     Dates: start: 20100501
  8. METOPROLOL TARTRATE [Concomitant]
     Route: 048
     Dates: start: 20100501
  9. AUTOPEN 24 [Suspect]
  10. LANTUS [Suspect]
     Indication: TYPE 2 DIABETES MELLITUS
     Route: 058
  11. GALVUS [Concomitant]
     Indication: TYPE 2 DIABETES MELLITUS
     Route: 048
     Dates: start: 20080101

REACTIONS (6)
  - PERIPHERAL ARTERIAL OCCLUSIVE DISEASE [None]
  - PAIN [None]
  - HYPERHIDROSIS [None]
  - DRY MOUTH [None]
  - POOR PERIPHERAL CIRCULATION [None]
  - HYPERGLYCAEMIA [None]
